FAERS Safety Report 15834934 (Version 1)
Quarter: 2019Q1

REPORT INFORMATION
  Report Type: Report from Study
  Country: CA (occurrence: CA)
  Receive Date: 20190116
  Receipt Date: 20190116
  Transmission Date: 20190417
  Serious: Yes (Other)
  Sender: FDA-Public Use
  Company Number: CA-ROCHE-2244833

PATIENT
  Sex: Male

DRUGS (11)
  1. CRESTOR [Concomitant]
     Active Substance: ROSUVASTATIN CALCIUM
  2. METHOTREXATE. [Concomitant]
     Active Substance: METHOTREXATE
  3. ASA [Concomitant]
     Active Substance: ASPIRIN
  4. ACTEMRA [Suspect]
     Active Substance: TOCILIZUMAB
     Indication: RHEUMATOID ARTHRITIS
     Route: 058
     Dates: start: 20170412, end: 20170412
  5. XELJANZ [Concomitant]
     Active Substance: TOFACITINIB CITRATE
  6. NAPROXEN. [Concomitant]
     Active Substance: NAPROXEN
  7. PANTO (CANADA) [Concomitant]
  8. PREGABALIN. [Concomitant]
     Active Substance: PREGABALIN
  9. BISOPROLOL [Concomitant]
     Active Substance: BISOPROLOL
  10. FOLIC ACID. [Concomitant]
     Active Substance: FOLIC ACID
  11. TRAMACET [Concomitant]
     Active Substance: ACETAMINOPHEN\TRAMADOL

REACTIONS (2)
  - Stomatitis [Unknown]
  - Skin mass [Unknown]
